FAERS Safety Report 9893548 (Version 4)
Quarter: 2014Q1

REPORT INFORMATION
  Report Type: Spontaneous
  Country: US (occurrence: US)
  Receive Date: 20140213
  Receipt Date: 20140317
  Transmission Date: 20141002
  Serious: Yes (Death, Life-Threatening, Hospitalization, Other)
  Sender: FDA-Public Use
  Company Number: US-009507513-1402USA005829

PATIENT
  Sex: Male
  Weight: 171.43 kg

DRUGS (14)
  1. JANUVIA [Suspect]
     Indication: TYPE 2 DIABETES MELLITUS
     Dosage: 100 MG, QD
     Route: 048
     Dates: start: 20111207, end: 20130320
  2. INSULIN [Concomitant]
     Indication: TYPE 2 DIABETES MELLITUS
  3. GLYBURIDE [Concomitant]
     Indication: TYPE 2 DIABETES MELLITUS
  4. LEVEMIR [Concomitant]
     Indication: TYPE 2 DIABETES MELLITUS
     Dosage: 50 IU, QD
     Route: 058
  5. ECOTRIN [Concomitant]
     Dosage: 81 MG, QD
  6. METHOTREXATE [Concomitant]
     Dosage: 2.5 MG, 4 TABS ONCE/WEEK
  7. NITROGLYCERIN [Concomitant]
     Dosage: 0.4 MG, UNK
  8. FOLIC ACID [Concomitant]
     Dosage: 1 MG, QD
  9. CARVEDILOL [Concomitant]
     Indication: ESSENTIAL HYPERTENSION
     Dosage: 25 MG, BID
  10. K-TAB [Concomitant]
     Dosage: 20 MEQ, BID
  11. FUROSEMIDE [Concomitant]
     Indication: ESSENTIAL HYPERTENSION
     Dosage: 40 MG, BID
  12. LISINOPRIL [Concomitant]
     Indication: ESSENTIAL HYPERTENSION
     Dosage: 5 MG, QD
  13. FENOFIBRATE [Concomitant]
     Indication: HYPERTRIGLYCERIDAEMIA
     Dosage: 160 MG, QD
  14. COREG [Concomitant]
     Indication: ESSENTIAL HYPERTENSION

REACTIONS (18)
  - Pancreatic carcinoma metastatic [Fatal]
  - Gastrointestinal haemorrhage [Fatal]
  - Haemorrhagic anaemia [Fatal]
  - Cardiac pacemaker insertion [Unknown]
  - Pancreatitis [Unknown]
  - Abdominal pain upper [Unknown]
  - Nausea [Unknown]
  - Pancreatic neoplasm [Unknown]
  - Haematoma [Unknown]
  - Anxiety [Unknown]
  - Gallbladder disorder [Unknown]
  - Cardiac disorder [Unknown]
  - Thyroid disorder [Unknown]
  - Dyspepsia [Unknown]
  - Hepatomegaly [Unknown]
  - Hepatic steatosis [Unknown]
  - Chest pain [Unknown]
  - Back pain [Unknown]
